FAERS Safety Report 6261245-1 (Version None)
Quarter: 2009Q3

REPORT INFORMATION
  Report Type: 
  Country: None (occurrence: None)
  Receive Date: 20090709
  Receipt Date: 20090626
  Transmission Date: 20100115
  Serious: Yes (Other)
  Sender: FDA-Public Use
  Company Number: CN-ROCHE-636790

PATIENT
  Age: 29 Year
  Sex: Male

DRUGS (2)
  1. PEGASYS [Suspect]
     Indication: HEPATITIS C
     Route: 065
     Dates: start: 20080801
  2. RIBAVIRIN (NON-ROCHE) [Concomitant]
     Indication: HEPATITIS C

REACTIONS (2)
  - LUNG NEOPLASM [None]
  - NEOPLASM [None]
